FAERS Safety Report 8289497-7 (Version None)
Quarter: 2012Q2

REPORT INFORMATION
  Report Type: 
  Country: None (occurrence: None)
  Receive Date: 20120417
  Receipt Date: 20120412
  Transmission Date: 20120825
  Serious: Yes (Death, Hospitalization, Other)
  Sender: FDA-Public Use
  Company Number: US-ASTELLAS-2012US003590

PATIENT
  Sex: Male
  Weight: 87 kg

DRUGS (14)
  1. ERLOTINIB HYDROCHLORIDE [Suspect]
     Indication: LIP AND/OR ORAL CAVITY CANCER RECURRENT
     Dosage: 150 MG, UID/QD
     Route: 048
     Dates: start: 20120317, end: 20120326
  2. CISPLATIN [Suspect]
     Indication: LIP AND/OR ORAL CAVITY CANCER RECURRENT
     Dosage: UNK
     Route: 065
     Dates: start: 20120317, end: 20120326
  3. DEXAMETHASONE [Concomitant]
     Indication: NAUSEA
     Dosage: 4 MG, Q12 HOURS
  4. FENTANYL [Concomitant]
     Indication: PAIN
     Dosage: 50 UG, Q3D
     Route: 065
  5. HYDROCODONE BITARTRATE AND ACETAMINOPHEN [Concomitant]
     Indication: PAIN
     Dosage: UNK, 4-6 HRS
     Route: 048
  6. ONDANSETRON [Concomitant]
     Indication: NAUSEA
     Dosage: UNK, Q 8HRS
     Route: 048
  7. NEULASTA [Concomitant]
     Indication: PRODUCT USED FOR UNKNOWN INDICATION
     Dosage: UNK
     Route: 065
  8. LISINOPRIL [Concomitant]
     Indication: BLOOD PRESSURE
     Dosage: 5 MG, UID/QD
     Route: 048
  9. DOCETAXEL [Suspect]
     Indication: LIP AND/OR ORAL CAVITY CANCER RECURRENT
     Dosage: UNK
     Route: 065
     Dates: start: 20120317, end: 20120326
  10. LOMOTIL [Concomitant]
     Indication: DIARRHOEA
     Dosage: UNK
     Route: 048
  11. IMODIUM [Concomitant]
     Indication: DIARRHOEA
     Dosage: UNK
     Route: 048
  12. ATENOLOL [Concomitant]
     Indication: BLOOD PRESSURE
     Dosage: 50 MG, UID/QD
     Route: 048
  13. DEXAMETHASONE [Concomitant]
     Indication: VOMITING
  14. ONDANSETRON [Concomitant]
     Indication: VOMITING

REACTIONS (20)
  - OFF LABEL USE [None]
  - RESPIRATORY FAILURE [None]
  - CARDIAC ARREST [None]
  - BRAIN INJURY [None]
  - DERMATITIS ACNEIFORM [None]
  - DECREASED APPETITE [None]
  - DYSPHAGIA [None]
  - ORAL PAIN [None]
  - STOMATITIS [None]
  - DIARRHOEA [None]
  - SWOLLEN TONGUE [None]
  - WEIGHT DECREASED [None]
  - DEHYDRATION [None]
  - MYALGIA [None]
  - HYPOMAGNESAEMIA [None]
  - LEUKOCYTOSIS [None]
  - FATIGUE [None]
  - ANXIETY [None]
  - HYPOPHAGIA [None]
  - DEATH [None]
